FAERS Safety Report 22126596 (Version 1)
Quarter: 2023Q1

REPORT INFORMATION
  Report Type: Spontaneous
  Country: DE (occurrence: DE)
  Receive Date: 20230322
  Receipt Date: 20230322
  Transmission Date: 20230417
  Serious: Yes (Other)
  Sender: FDA-Public Use
  Company Number: DE-ANIPHARMA-2023-DE-000049

PATIENT
  Age: 62 Year
  Sex: Female
  Weight: 82 kg

DRUGS (1)
  1. ANASTROZOLE [Suspect]
     Active Substance: ANASTROZOLE
     Indication: Breast cancer
     Dosage: 1MG
     Route: 048
     Dates: start: 20221221, end: 20230216

REACTIONS (10)
  - Carpal tunnel syndrome [Recovered/Resolved]
  - Pruritus [Recovered/Resolved]
  - Cystitis noninfective [Recovered/Resolved]
  - Aphasia [Recovered/Resolved]
  - Hypoaesthesia [Recovered/Resolved]
  - Urticaria [Recovered/Resolved]
  - Depression [Recovered/Resolved]
  - Myalgia [Recovered/Resolved]
  - Paraesthesia [Recovered/Resolved]
  - Arthralgia [Recovered/Resolved]

NARRATIVE: CASE EVENT DATE: 20221226
